FAERS Safety Report 7602656-9 (Version None)
Quarter: 2011Q3

REPORT INFORMATION
  Report Type: 
  Country: None (occurrence: None)
  Receive Date: 20110712
  Receipt Date: 20110630
  Transmission Date: 20111222
  Serious: Yes (Death)
  Sender: FDA-Public Use
  Company Number: SK-ELI_LILLY_AND_COMPANY-SK201105008465

PATIENT
  Sex: Male

DRUGS (6)
  1. OLANZAPINE [Suspect]
     Indication: SCHIZOPHRENIA, PARANOID TYPE
     Dosage: 300 MG, EVERY 2WEEKS
     Route: 030
     Dates: start: 20110520
  2. ZYPREXA [Suspect]
     Indication: SCHIZOPHRENIA, PARANOID TYPE
     Dosage: 10 MG, UNK
     Route: 048
     Dates: start: 20110510
  3. BIPERIDEN HYDROCHLORIDE TAB [Concomitant]
  4. HALOPERIDOL [Concomitant]
     Indication: SCHIZOPHRENIA, PARANOID TYPE
  5. ZYPREXA [Suspect]
     Dosage: 20 MG, QD
     Dates: end: 20110519
  6. ZOLPIDEM [Concomitant]
     Indication: INSOMNIA

REACTIONS (2)
  - COMPLETED SUICIDE [None]
  - MULTIPLE INJURIES [None]
